FAERS Safety Report 12764339 (Version 1)
Quarter: 2016Q3

REPORT INFORMATION
  Report Type: Spontaneous
  Country: US (occurrence: US)
  Receive Date: 20160920
  Receipt Date: 20160920
  Transmission Date: 20161109
  Serious: No
  Sender: FDA-Public Use
  Company Number: US-PFIZER INC-2016432166

PATIENT
  Age: 44 Year
  Sex: Female
  Weight: 86 kg

DRUGS (1)
  1. PREMARIN [Suspect]
     Active Substance: ESTROGENS, CONJUGATED
     Indication: FLUID IMBALANCE
     Dosage: 0.625 MG, 1X/DAY
     Route: 048
     Dates: start: 201109

REACTIONS (5)
  - Disturbance in attention [Unknown]
  - Feeling abnormal [Recovering/Resolving]
  - Anxiety [Unknown]
  - Activities of daily living impaired [Recovering/Resolving]
  - Paranoia [Unknown]

NARRATIVE: CASE EVENT DATE: 20160909
